FAERS Safety Report 7612769-3 (Version None)
Quarter: 2011Q3

REPORT INFORMATION
  Report Type: 
  Country: None (occurrence: None)
  Receive Date: 20110708
  Receipt Date: 20110629
  Transmission Date: 20111222
  Serious: Yes (Death, Other)
  Sender: FDA-Public Use
  Company Number: US-2011-10446

PATIENT
  Age: 48 Year
  Sex: Male

DRUGS (11)
  1. THIOTEPA [Concomitant]
  2. CYCLOPHOSPHAMIDE [Suspect]
     Indication: STEM CELL TRANSPLANT
     Dosage: 120 MG/KG; DAILY DOSE, INTRAVENOUS
     Route: 042
  3. FLUCONAZOLE [Concomitant]
  4. TRIMETHOPRIM + SULFAMETHOXAZOLE [Concomitant]
  5. CYCLOSPORINE [Concomitant]
  6. THIOTEPA [Concomitant]
  7. ACYCLOVIR [Concomitant]
  8. CYCLOPHOSPHAMIDE [Suspect]
     Indication: STEM CELL TRANSPLANT
     Dosage: 120 MG/KG, DAILY DOSE, INTRAVENOUS
     Route: 042
  9. CIPROFLOXACIN (CIPROFLOXACIN LACTATE) [Concomitant]
  10. GANCICLOVIR (GANCICLOVIR SODIUM) [Concomitant]
  11. BUSULFAN [Suspect]
     Indication: STEM CELL TRANSPLANT
     Dosage: 9.6 MG/KG, DAILY DOSE, INTRAVENOUS
     Route: 042

REACTIONS (19)
  - HYPOREFLEXIA [None]
  - GRAFT VERSUS HOST DISEASE [None]
  - HAEMOGLOBIN DECREASED [None]
  - DIPLOPIA [None]
  - GAIT DISTURBANCE [None]
  - EFFUSION [None]
  - DEPRESSED LEVEL OF CONSCIOUSNESS [None]
  - BRAIN HERNIATION [None]
  - PNEUMONIA [None]
  - BRAIN OEDEMA [None]
  - SUBARACHNOID HAEMORRHAGE [None]
  - PLATELET COUNT DECREASED [None]
  - VENOOCCLUSIVE LIVER DISEASE [None]
  - SINUSITIS [None]
  - RESPIRATORY FAILURE [None]
  - MENINGOENCEPHALITIS AMOEBIC [None]
  - CYTOMEGALOVIRUS INFECTION [None]
  - LYMPHOMA [None]
  - CSF PROTEIN INCREASED [None]
